FAERS Safety Report 14633552 (Version 3)
Quarter: 2022Q1

REPORT INFORMATION
  Report Type: Spontaneous
  Country: GB (occurrence: GB)
  Receive Date: 20180314
  Receipt Date: 20220125
  Transmission Date: 20220423
  Serious: Yes (Congenital Anomaly)
  Sender: FDA-Public Use
  Company Number: None

PATIENT

DRUGS (4)
  1. ONDANSETRON [Suspect]
     Active Substance: ONDANSETRON
     Indication: Foetal exposure during pregnancy
     Dosage: ADMINISTERED TO MOTHER IN THE PAST FOR HYPEREMESIS GRAVIDARUM
     Route: 064
     Dates: start: 20170902
  2. ONDANSETRON [Suspect]
     Active Substance: ONDANSETRON
     Indication: Hyperemesis gravidarum
  3. CYCLIZINE [Suspect]
     Active Substance: CYCLIZINE
     Indication: Foetal exposure during pregnancy
     Dosage: ADMINISTERED TO MOTHER IN THE PAST FOR HYPEREMESIS GRAVIDARUM
     Route: 064
     Dates: start: 20170902
  4. CYCLIZINE [Suspect]
     Active Substance: CYCLIZINE
     Indication: Hyperemesis gravidarum

REACTIONS (3)
  - Congenital hand malformation [Unknown]
  - Foetal exposure during pregnancy [Unknown]
  - Amniotic band syndrome [Unknown]
